FAERS Safety Report 12864720 (Version 2)
Quarter: 2016Q4

REPORT INFORMATION
  Report Type: Spontaneous
  Country: GR (occurrence: GR)
  Receive Date: 20161020
  Receipt Date: 20161102
  Transmission Date: 20170207
  Serious: Yes (Hospitalization, Other)
  Sender: FDA-Public Use
  Company Number: PHHY2016GR142020

PATIENT
  Age: 84 Year
  Sex: Male

DRUGS (1)
  1. TASIGNA [Suspect]
     Active Substance: NILOTINIB
     Indication: CHRONIC MYELOID LEUKAEMIA
     Dosage: UNK
     Route: 065
     Dates: start: 20160705

REACTIONS (10)
  - Diarrhoea [Recovered/Resolved]
  - Haematocrit decreased [Recovering/Resolving]
  - Leukopenia [Recovered/Resolved]
  - Atrial fibrillation [Recovered/Resolved]
  - Syncope [Unknown]
  - Helicobacter test positive [Recovering/Resolving]
  - Gastric ulcer [Recovering/Resolving]
  - Faeces discoloured [Recovering/Resolving]
  - Neutropenia [Recovered/Resolved]
  - Gastrointestinal haemorrhage [Recovering/Resolving]

NARRATIVE: CASE EVENT DATE: 20160707
